FAERS Safety Report 10681909 (Version 2)
Quarter: 2015Q1

REPORT INFORMATION
  Report Type: Report from Study
  Country: CA (occurrence: CA)
  Receive Date: 20141230
  Receipt Date: 20150202
  Transmission Date: 20150720
  Serious: Yes (Hospitalization, Other)
  Sender: FDA-Public Use
  Company Number: CA-AMGEN-CANSL2014100925

PATIENT
  Age: 83 Year
  Sex: Female

DRUGS (5)
  1. VITAMIN D                          /00107901/ [Concomitant]
     Active Substance: ERGOCALCIFEROL
     Dosage: 2000 IU, QD
  2. FISH OIL [Concomitant]
     Active Substance: FISH OIL
  3. COD LIVER OIL [Concomitant]
     Active Substance: COD LIVER OIL
  4. INSULIN [Concomitant]
     Active Substance: INSULIN NOS
     Dosage: 4 TIMES A DAY
  5. PROLIA [Suspect]
     Active Substance: DENOSUMAB
     Indication: OSTEOPOROSIS POSTMENOPAUSAL
     Dosage: 60 MG/ML, UNK
     Route: 065
     Dates: start: 20140612

REACTIONS (3)
  - Spinal pain [Not Recovered/Not Resolved]
  - Spinal fracture [Unknown]
  - Fracture [Not Recovered/Not Resolved]
